FAERS Safety Report 9553884 (Version 2)
Quarter: 2014Q4

REPORT INFORMATION
  Report Type: Spontaneous
  Country: US (occurrence: None)
  Receive Date: 20130821
  Receipt Date: 20141119
  Transmission Date: 20150529
  Serious: No
  Sender: FDA-Public Use
  Company Number: 1000046384

PATIENT
  Age: 75 Year
  Sex: Female

DRUGS (6)
  1. TUDORZA PRESSAIR [Suspect]
     Active Substance: ACLIDINIUM BROMIDE
     Indication: CHRONIC OBSTRUCTIVE PULMONARY DISEASE
     Dosage: 800 MCG (400 MCG, 2 IN 1 D) , RESPIRATORY (INHALATION)
     Route: 055
     Dates: start: 20130622
  2. VENTOLIN HFA (SALBUTAMOL, SULFATE) [Concomitant]
  3. FUROSEMIDE (FUROSEMIDE) [Concomitant]
     Active Substance: FUROSEMIDE
  4. ADVAIR (FLUTICASONE, SALMETEROL) (FLUTICASONE, SALMETEROL) [Concomitant]
  5. TUDORZA PRESSAIR [Suspect]
     Active Substance: ACLIDINIUM BROMIDE
     Indication: EMPHYSEMA
     Dosage: 800 MCG (400 MCG, 2 IN 1 D) , RESPIRATORY (INHALATION)
     Route: 055
     Dates: start: 20130622
  6. COMBIVENT (IPRATROPIUM, ALBUTEROL) [Concomitant]

REACTIONS (2)
  - Throat irritation [None]
  - Onychomycosis [None]

NARRATIVE: CASE EVENT DATE: 2013
